FAERS Safety Report 8171014-3 (Version None)
Quarter: 2012Q1

REPORT INFORMATION
  Report Type: 
  Country: None (occurrence: None)
  Receive Date: 20120104
  Receipt Date: 20110913
  Transmission Date: 20120608
  Serious: No
  Sender: FDA-Public Use
  Company Number: 2011HGS-002529

PATIENT
  Age: 54 Year
  Sex: Female

DRUGS (2)
  1. BENLYSTA [Suspect]
     Indication: SYSTEMIC LUPUS ERYTHEMATOSUS
     Dosage: 10 MG/KG, 1 IN 2 WK, INTRAVENOUS DRIP
     Route: 041
     Dates: start: 20110801, end: 20110913
  2. LISINOPRIL [Concomitant]

REACTIONS (5)
  - CHILLS [None]
  - PAIN [None]
  - HYPOTENSION [None]
  - HEADACHE [None]
  - BRADYCARDIA [None]
